FAERS Safety Report 8594585-1 (Version None)
Quarter: 2012Q3

REPORT INFORMATION
  Report Type: 
  Country: None (occurrence: None)
  Receive Date: 20120801
  Receipt Date: 20120719
  Transmission Date: 20120928
  Serious: Yes (Other)
  Sender: FDA-Public Use
  Company Number: FK201202066

PATIENT
  Age: 3 Year
  Sex: Male
  Weight: 14.5 kg

DRUGS (4)
  1. SODIUM CHLORIDE [Concomitant]
  2. AMIKACIN [Concomitant]
  3. VANCOMYCIN HYDROCHLORIDE [Suspect]
     Indication: ALPHA HAEMOLYTIC STREPTOCOCCAL INFECTION
     Dosage: 200 MG, EVERY 6 HRS OVER 60 MINUTES, INTRAVENOUS (NOT OTHERWISE SPECIFIED)
     Route: 042
  4. PENICILLIN G [Concomitant]

REACTIONS (1)
  - RED MAN SYNDROME [None]
